FAERS Safety Report 9061645 (Version 1)
Quarter: 2013Q1

REPORT INFORMATION
  Report Type: Spontaneous
  Country: US (occurrence: None)
  Receive Date: 20130211
  Receipt Date: 20130211
  Transmission Date: 20140127
  Serious: Yes (Hospitalization)
  Sender: FDA-Public Use
  Company Number: None

PATIENT
  Age: 65 Year
  Sex: Male
  Weight: 129.7 kg

DRUGS (1)
  1. ACETAMINOPHEN\HYDROCODONE [Suspect]
     Dosage: 1-2 TAB
     Route: 048
     Dates: start: 20121219, end: 20121220

REACTIONS (2)
  - Presyncope [None]
  - Hypotension [None]
